FAERS Safety Report 23045848 (Version 1)
Quarter: 2023Q4

REPORT INFORMATION
  Report Type: Spontaneous
  Country: GT (occurrence: GT)
  Receive Date: 20231009
  Receipt Date: 20231009
  Transmission Date: 20240109
  Serious: Yes (Death, Other)
  Sender: FDA-Public Use
  Company Number: GT-BAYER-2023A137388

PATIENT
  Sex: Male

DRUGS (1)
  1. NEXAVAR [Suspect]
     Active Substance: SORAFENIB
     Indication: Hepatocellular carcinoma
     Dosage: 800MG A DAY
     Dates: start: 20230110, end: 202308

REACTIONS (6)
  - General physical health deterioration [Fatal]
  - Drug ineffective [Fatal]
  - Adverse drug reaction [Fatal]
  - Internal haemorrhage [Fatal]
  - Cardiac arrest [Fatal]
  - Product prescribing issue [Fatal]

NARRATIVE: CASE EVENT DATE: 20230831
